FAERS Safety Report 25664331 (Version 2)
Quarter: 2025Q3

REPORT INFORMATION
  Report Type: Spontaneous
  Country: US (occurrence: US)
  Receive Date: 20250811
  Receipt Date: 20250813
  Transmission Date: 20251021
  Serious: Yes (Other)
  Sender: PFIZER
  Company Number: US-PFIZER INC-202500159584

PATIENT
  Age: 61 Year
  Sex: Male

DRUGS (1)
  1. BRAFTOVI [Suspect]
     Active Substance: ENCORAFENIB
     Indication: Colorectal cancer metastatic

REACTIONS (3)
  - Metastases to liver [Unknown]
  - Metastases to lymph nodes [Unknown]
  - Blood bilirubin increased [Unknown]
